FAERS Safety Report 7266477-1 (Version None)
Quarter: 2011Q1

REPORT INFORMATION
  Report Type: 
  Country: None (occurrence: None)
  Receive Date: 20110131
  Receipt Date: 20110125
  Transmission Date: 20110831
  Serious: Yes (Other)
  Sender: FDA-Public Use
  Company Number: US-PFIZER INC-2011018171

PATIENT
  Sex: Female
  Weight: 74.83 kg

DRUGS (2)
  1. NEURONTIN [Suspect]
     Indication: DRUG WITHDRAWAL SYNDROME
     Dosage: 1800 MG, UNK
     Route: 048
     Dates: start: 20100101
  2. BENAZEPRIL HYDROCHLORIDE [Suspect]
     Dosage: UNK

REACTIONS (5)
  - PRESYNCOPE [None]
  - HEART RATE INCREASED [None]
  - DIZZINESS [None]
  - FEELING ABNORMAL [None]
  - DRUG WITHDRAWAL SYNDROME [None]
